FAERS Safety Report 14109990 (Version 1)
Quarter: 2017Q4

REPORT INFORMATION
  Report Type: Spontaneous
  Country: US (occurrence: US)
  Receive Date: 20171020
  Receipt Date: 20171020
  Transmission Date: 20180321
  Serious: No
  Sender: FDA-Public Use
  Company Number: US-TEVA-726989ACC

PATIENT
  Sex: Female
  Weight: 77 kg

DRUGS (2)
  1. SPRINTEC [Suspect]
     Active Substance: ETHINYL ESTRADIOL\NORGESTIMATE
     Indication: MENORRHAGIA
  2. SPRINTEC [Suspect]
     Active Substance: ETHINYL ESTRADIOL\NORGESTIMATE
     Indication: CONTRACEPTION
     Dosage: DOSE STRENGTH: 0.18/0.25; 0.215/0.035; 0.250

REACTIONS (4)
  - Dysmenorrhoea [Unknown]
  - Menstruation irregular [Unknown]
  - Nausea [Unknown]
  - Drug dose omission [Unknown]
